FAERS Safety Report 5320705-8 (Version None)
Quarter: 2007Q2

REPORT INFORMATION
  Report Type: 
  Country: None (occurrence: None)
  Receive Date: 20070502
  Receipt Date: 20070417
  Transmission Date: 20071010
  Serious: Yes (Death, Hospitalization)
  Sender: FDA-Public Use
  Company Number: 2007000257

PATIENT
  Age: 72 Year
  Sex: Male
  Weight: 77.9 kg

DRUGS (16)
  1. ERLOTINIB (TABLET) [Suspect]
     Indication: NON-SMALL CELL LUNG CANCER
     Dosage: 150 MG (QD), ORAL
     Route: 048
     Dates: start: 20061218
  2. ERLOTINIB (TABLET) [Suspect]
     Dates: start: 20061211
  3. BEVACIZUMAB OR PLACEBO (INJECTION FOR INFUSION) [Suspect]
     Indication: NON-SMALL CELL LUNG CANCER
     Dosage: 1185 MG (Q3W), INTRAVENOUS
     Route: 042
     Dates: start: 20061218
  4. BEVACIZUMAB OR PLACEBO (INJECTION FOR INFUSION) [Suspect]
  5. BEVACIZUMAB OR PLACEBO (INJECTION FOR INFUSION) [Suspect]
  6. BEVACIZUMAB OR PLACEBO (INJECTION FOR INFUSION) [Suspect]
  7. PREDNISONE TAB [Concomitant]
  8. LISINOPRIL [Concomitant]
  9. ATENOLOL [Concomitant]
  10. SIMVASTATIN [Concomitant]
  11. ZETIA [Concomitant]
  12. CALCIUM CARBONATE (CALCIUM CARBONATE) [Concomitant]
  13. DOXYCYCLINE HYCLATE (DOXYCYCLINE HYCLATE) [Concomitant]
  14. AVELOX [Concomitant]
  15. POLYETHYLENE GLYCOL-ELECTROLYTE (MACROGOL) [Concomitant]
  16. DULCOLAX [Concomitant]

REACTIONS (5)
  - ACUTE RESPIRATORY DISTRESS SYNDROME [None]
  - DISEASE PROGRESSION [None]
  - LUNG CANCER METASTATIC [None]
  - PNEUMONIA [None]
  - PULMONARY FIBROSIS [None]
